FAERS Safety Report 7694197-8 (Version None)
Quarter: 2011Q3

REPORT INFORMATION
  Report Type: 
  Country: None (occurrence: None)
  Receive Date: 20110819
  Receipt Date: 20110816
  Transmission Date: 20111222
  Serious: Yes (Other)
  Sender: FDA-Public Use
  Company Number: US-PFIZER INC-2011150811

PATIENT
  Sex: Female
  Weight: 58.05 kg

DRUGS (6)
  1. CHANTIX [Suspect]
     Indication: SMOKING CESSATION THERAPY
     Dosage: 0.5 MG, 1X/DAY
     Route: 048
     Dates: start: 20110301, end: 20110101
  2. CHANTIX [Suspect]
     Dosage: 1 MG, 2X/DAY
     Route: 048
     Dates: start: 20110101, end: 20110601
  3. NEXIUM [Concomitant]
     Indication: GASTROOESOPHAGEAL REFLUX DISEASE
     Dosage: 40 MG, UNK
  4. SPIRIVA [Concomitant]
     Dosage: UNK
     Route: 055
  5. VENTOLIN HFA [Concomitant]
     Route: 055
  6. ALBUTEROL SULFATE AUTOHALER [Concomitant]
     Dosage: UNK
     Route: 055

REACTIONS (13)
  - HEART RATE INCREASED [None]
  - EMOTIONAL DISORDER [None]
  - ABNORMAL BEHAVIOUR [None]
  - DYSPNOEA [None]
  - PERSONALITY CHANGE [None]
  - CHEST PAIN [None]
  - DEPRESSION [None]
  - NERVOUSNESS [None]
  - HOSTILITY [None]
  - LIP SWELLING [None]
  - ABDOMINAL DISCOMFORT [None]
  - INSOMNIA [None]
  - RESPIRATORY RATE INCREASED [None]
